FAERS Safety Report 26088683 (Version 1)
Quarter: 2025Q4

REPORT INFORMATION
  Report Type: Spontaneous
  Country: EU (occurrence: EU)
  Receive Date: 20251125
  Receipt Date: 20251125
  Transmission Date: 20260117
  Serious: Yes (Hospitalization)
  Sender: MYLAN
  Company Number: None

PATIENT
  Age: 24 Year
  Sex: Male

DRUGS (24)
  1. LANSOPRAZOLE [Suspect]
     Active Substance: LANSOPRAZOLE
     Indication: Product used for unknown indication
     Dosage: 30 MILLIGRAM, QD
     Dates: start: 20251003
  2. LANSOPRAZOLE [Suspect]
     Active Substance: LANSOPRAZOLE
     Dosage: 30 MILLIGRAM, QD
     Route: 048
     Dates: start: 20251003
  3. LANSOPRAZOLE [Suspect]
     Active Substance: LANSOPRAZOLE
     Dosage: 30 MILLIGRAM, QD
     Route: 048
     Dates: start: 20251003
  4. LANSOPRAZOLE [Suspect]
     Active Substance: LANSOPRAZOLE
     Dosage: 30 MILLIGRAM, QD
     Dates: start: 20251003
  5. TOPIRAMATE [Suspect]
     Active Substance: TOPIRAMATE
     Indication: Mood swings
     Dosage: 25 MILLIGRAM, QD
     Dates: start: 20251017, end: 20251021
  6. TOPIRAMATE [Suspect]
     Active Substance: TOPIRAMATE
     Dosage: 25 MILLIGRAM, QD
     Route: 048
     Dates: start: 20251017, end: 20251021
  7. TOPIRAMATE [Suspect]
     Active Substance: TOPIRAMATE
     Dosage: 25 MILLIGRAM, QD
     Route: 048
     Dates: start: 20251017, end: 20251021
  8. TOPIRAMATE [Suspect]
     Active Substance: TOPIRAMATE
     Dosage: 25 MILLIGRAM, QD
     Dates: start: 20251017, end: 20251021
  9. BUSPIRONE HYDROCHLORIDE [Suspect]
     Active Substance: BUSPIRONE HYDROCHLORIDE
     Indication: Schizophrenia
     Dosage: 50 MILLIGRAM, QD
     Dates: start: 20251003
  10. BUSPIRONE HYDROCHLORIDE [Suspect]
     Active Substance: BUSPIRONE HYDROCHLORIDE
     Dosage: 50 MILLIGRAM, QD
     Route: 048
     Dates: start: 20251003
  11. BUSPIRONE HYDROCHLORIDE [Suspect]
     Active Substance: BUSPIRONE HYDROCHLORIDE
     Dosage: 50 MILLIGRAM, QD
     Route: 048
     Dates: start: 20251003
  12. BUSPIRONE HYDROCHLORIDE [Suspect]
     Active Substance: BUSPIRONE HYDROCHLORIDE
     Dosage: 50 MILLIGRAM, QD
     Dates: start: 20251003
  13. DIAZEPAM [Suspect]
     Active Substance: DIAZEPAM
     Indication: Schizophrenia
     Dosage: 7 MILLIGRAM, Q3D
     Dates: start: 20251003
  14. DIAZEPAM [Suspect]
     Active Substance: DIAZEPAM
     Dosage: 7 MILLIGRAM, Q3D
     Route: 048
     Dates: start: 20251003
  15. DIAZEPAM [Suspect]
     Active Substance: DIAZEPAM
     Dosage: 7 MILLIGRAM, Q3D
     Route: 048
     Dates: start: 20251003
  16. DIAZEPAM [Suspect]
     Active Substance: DIAZEPAM
     Dosage: 7 MILLIGRAM, Q3D
     Dates: start: 20251003
  17. TROPATEPINE [Suspect]
     Active Substance: TROPATEPINE
     Indication: Schizophrenia
     Dosage: 10 MILLIGRAM, BID (EVERY 12 HOURS)
     Dates: start: 20251004
  18. TROPATEPINE [Suspect]
     Active Substance: TROPATEPINE
     Dosage: 10 MILLIGRAM, BID (EVERY 12 HOURS)
     Route: 048
     Dates: start: 20251004
  19. TROPATEPINE [Suspect]
     Active Substance: TROPATEPINE
     Dosage: 10 MILLIGRAM, BID (EVERY 12 HOURS)
     Route: 048
     Dates: start: 20251004
  20. TROPATEPINE [Suspect]
     Active Substance: TROPATEPINE
     Dosage: 10 MILLIGRAM, BID (EVERY 12 HOURS)
     Dates: start: 20251004
  21. LEVOMEPROMAZINE [Suspect]
     Active Substance: LEVOMEPROMAZINE
     Indication: Schizophrenia
     Dosage: 25 MILLIGRAM, Q6H
     Dates: start: 20251003
  22. LEVOMEPROMAZINE [Suspect]
     Active Substance: LEVOMEPROMAZINE
     Dosage: 25 MILLIGRAM, Q6H
     Route: 048
     Dates: start: 20251003
  23. LEVOMEPROMAZINE [Suspect]
     Active Substance: LEVOMEPROMAZINE
     Dosage: 25 MILLIGRAM, Q6H
     Route: 048
     Dates: start: 20251003
  24. LEVOMEPROMAZINE [Suspect]
     Active Substance: LEVOMEPROMAZINE
     Dosage: 25 MILLIGRAM, Q6H
     Dates: start: 20251003

REACTIONS (1)
  - Suicidal ideation [Not Recovered/Not Resolved]

NARRATIVE: CASE EVENT DATE: 20251020
